FAERS Safety Report 6850087-1 (Version None)
Quarter: 2010Q3

REPORT INFORMATION
  Report Type: 
  Country: None (occurrence: None)
  Receive Date: 20100716
  Receipt Date: 20080303
  Transmission Date: 20110219
  Serious: No
  Sender: FDA-Public Use
  Company Number: US-PFIZER INC-2007085307

PATIENT
  Sex: Female
  Weight: 41.7 kg

DRUGS (1)
  1. CHANTIX [Suspect]
     Indication: TOBACCO USER
     Dates: start: 20070726, end: 20070728

REACTIONS (1)
  - THINKING ABNORMAL [None]
